FAERS Safety Report 15956990 (Version 1)
Quarter: 2019Q1

REPORT INFORMATION
  Report Type: Spontaneous
  Country: FR (occurrence: FR)
  Receive Date: 20190213
  Receipt Date: 20190213
  Transmission Date: 20190417
  Serious: Yes (Hospitalization)
  Sender: FDA-Public Use
  Company Number: FR-INTERCEPT-PMOCA2018000878

PATIENT

DRUGS (6)
  1. KARDEGIC [Concomitant]
     Active Substance: ASPIRIN DL-LYSINE
     Dosage: 75 UNK, UNK
  2. CHOLURSO [Concomitant]
     Active Substance: URSODIOL
     Indication: PRIMARY BILIARY CHOLANGITIS
     Dosage: 500 MG, BID
     Route: 065
     Dates: start: 201604
  3. OCALIVA [Suspect]
     Active Substance: OBETICHOLIC ACID
     Dosage: 5 MG, QOD
     Route: 065
     Dates: start: 20180601
  4. OCALIVA [Suspect]
     Active Substance: OBETICHOLIC ACID
     Indication: PRIMARY BILIARY CHOLANGITIS
     Dosage: 5 MG, QD
     Route: 065
     Dates: start: 20170801
  5. CACIT D3 [Concomitant]
     Active Substance: CALCIUM\CHOLECALCIFEROL
     Dosage: 880 IU, QD
     Dates: start: 201604
  6. BEFIZAL LP [Concomitant]
     Dosage: 400 MG, QD
     Dates: start: 20180106

REACTIONS (5)
  - Conduction disorder [Recovered/Resolved]
  - Epilepsy [Recovered/Resolved]
  - Chronic kidney disease [Unknown]
  - Pruritus [Recovered/Resolved]
  - Hypertensive nephropathy [Unknown]

NARRATIVE: CASE EVENT DATE: 20170801
